FAERS Safety Report 10348839 (Version 1)
Quarter: 2014Q3

REPORT INFORMATION
  Report Type: Spontaneous
  Country: CN (occurrence: None)
  Receive Date: 20140725
  Receipt Date: 20140725
  Transmission Date: 20150326
  Serious: Yes (Hospitalization, Other)
  Sender: FDA-Public Use
  Company Number: IMP_07738_2014

PATIENT
  Age: 49 Year
  Sex: Male

DRUGS (1)
  1. DIGOXIN. [Suspect]
     Active Substance: DIGOXIN
     Indication: HYPERTENSION
     Dosage: (0.25 MG BID, [NOT THE PRESCRIBED DOSE])
     Dates: start: 201004, end: 201006

REACTIONS (17)
  - Refusal of treatment by relative [None]
  - Palpitations [None]
  - Wrong drug administered [None]
  - Papillary muscle disorder [None]
  - Aortic aneurysm rupture [None]
  - Acute myocardial infarction [None]
  - Overdose [None]
  - Acute coronary syndrome [None]
  - Heart rate increased [None]
  - Interventricular septum rupture [None]
  - Vomiting [None]
  - Cardiac murmur [None]
  - Cardioactive drug level increased [None]
  - Coronary artery disease [None]
  - Tricuspid valve incompetence [None]
  - Medication error [None]
  - Hyperhidrosis [None]
